FAERS Safety Report 25413214 (Version 1)
Quarter: 2025Q2

REPORT INFORMATION
  Report Type: Spontaneous
  Country: CA (occurrence: CA)
  Receive Date: 20250609
  Receipt Date: 20250609
  Transmission Date: 20250716
  Serious: Yes (Other)
  Sender: PFIZER
  Company Number: CA-PFIZER INC-202500116091

PATIENT
  Age: 59 Year
  Sex: Female

DRUGS (4)
  1. ABRILADA [Suspect]
     Active Substance: ADALIMUMAB-AFZB
     Indication: Psoriatic arthropathy
     Route: 058
     Dates: start: 20240604, end: 202502
  2. ADVIL [Concomitant]
     Active Substance: IBUPROFEN
  3. LEVOFLOXACIN SODIUM [Concomitant]
     Active Substance: LEVOFLOXACIN SODIUM
     Dates: start: 2014
  4. SULFASALAZINE [Concomitant]
     Active Substance: SULFASALAZINE
     Dosage: 400 MG, 2X/DAY
     Dates: start: 202307

REACTIONS (2)
  - Vasculitis [Unknown]
  - Aortic valve thickening [Unknown]
